FAERS Safety Report 9668715 (Version 2)
Quarter: 2013Q4

REPORT INFORMATION
  Report Type: Spontaneous
  Country: US (occurrence: US)
  Receive Date: 20131105
  Receipt Date: 20131111
  Transmission Date: 20140711
  Serious: Yes (Hospitalization)
  Sender: FDA-Public Use
  Company Number: US-SA-2013SA112379

PATIENT
  Sex: Male
  Weight: 61.4 kg

DRUGS (38)
  1. FABRAZYME [Suspect]
     Indication: FABRY^S DISEASE
     Dosage: DOSE : 70 MG
     Route: 042
     Dates: start: 20060907
  2. LYRICA [Concomitant]
  3. NORMAL SALINE [Concomitant]
  4. SODIUM CHLORIDE [Concomitant]
  5. WATER FOR INJECTION [Concomitant]
  6. EPIPEN [Concomitant]
  7. BUMETANIDE [Concomitant]
  8. MIRTAZAPINE [Concomitant]
  9. LAMOTRIGINE [Concomitant]
  10. VENTOLINE [Concomitant]
  11. CLONIDINE [Concomitant]
  12. OXYCODONE [Concomitant]
  13. LEVOTHYROXINE [Concomitant]
  14. LEXAPRO [Concomitant]
  15. PLAVIX [Concomitant]
  16. SENSIPAR [Concomitant]
  17. XANAX [Concomitant]
  18. DOCUSATE SODIUM [Concomitant]
  19. OXYCONTIN [Concomitant]
  20. SINGULAIR [Concomitant]
  21. CALCITRIOL [Concomitant]
  22. SANDIMMUNE [Concomitant]
  23. ASMANEX [Concomitant]
  24. ZOFRAN [Concomitant]
  25. BYSTOLIC [Concomitant]
  26. HYDRALAZINE [Concomitant]
  27. TERAZOSIN [Concomitant]
  28. FENTANYL [Concomitant]
  29. ASPIRIN [Concomitant]
  30. PROVENTIL [Concomitant]
  31. KLOR-CON [Concomitant]
  32. TRIMETHOBENZAMIDE [Concomitant]
  33. ZYPREXA [Concomitant]
  34. PREDNISONE [Concomitant]
  35. ENALAPRIL [Concomitant]
  36. METOCLOPRAMIDE [Concomitant]
  37. DIAZEPAM [Concomitant]
  38. PERCOCET [Concomitant]

REACTIONS (1)
  - Renal failure [Not Recovered/Not Resolved]
